FAERS Safety Report 12305159 (Version 1)
Quarter: 2016Q2

REPORT INFORMATION
  Report Type: Spontaneous
  Country: US (occurrence: US)
  Receive Date: 20160426
  Receipt Date: 20160426
  Transmission Date: 20160815
  Serious: No
  Sender: FDA-Public Use
  Company Number: US-009507513-1604USA010305

PATIENT
  Sex: Female
  Weight: 97.52 kg

DRUGS (2)
  1. AMLODIPINE [Suspect]
     Active Substance: AMLODIPINE BESYLATE
     Dosage: UNK
     Dates: start: 201404, end: 201506
  2. COZAAR [Suspect]
     Active Substance: LOSARTAN POTASSIUM
     Dosage: UNK
     Route: 048
     Dates: start: 201404, end: 201506

REACTIONS (4)
  - Eye swelling [Unknown]
  - Dizziness [Unknown]
  - Alopecia [Unknown]
  - Swollen tongue [Unknown]

NARRATIVE: CASE EVENT DATE: 2015
